FAERS Safety Report 4969290-0 (Version None)
Quarter: 2006Q2

REPORT INFORMATION
  Report Type: 
  Country: None (occurrence: None)
  Receive Date: 20060411
  Receipt Date: 20050527
  Transmission Date: 20061013
  Serious: Yes (Hospitalization)
  Sender: FDA-Public Use
  Company Number: ES-ROCHE-406152

PATIENT
  Age: 58 Year
  Sex: Male

DRUGS (4)
  1. PEG-INTERFERON ALFA 2A (RO 25-8310) [Suspect]
     Route: 058
     Dates: start: 20041222, end: 20050321
  2. RIBAVIRIN [Suspect]
     Route: 048
     Dates: start: 20041222, end: 20050323
  3. PANTOPRAZOLE [Concomitant]
     Dates: start: 20041229
  4. NIFEDIPINE [Concomitant]
     Indication: HYPERTENSION
     Dates: start: 19970615

REACTIONS (4)
  - DEMYELINATION [None]
  - EPILEPSY [None]
  - GLIOSIS [None]
  - LEUKOARAIOSIS [None]
